FAERS Safety Report 9242974 (Version 6)
Quarter: 2016Q1

REPORT INFORMATION
  Report Type: Spontaneous
  Country: DK (occurrence: DK)
  Receive Date: 20130419
  Receipt Date: 20160315
  Transmission Date: 20160526
  Serious: Yes (Disabling, Other)
  Sender: FDA-Public Use
  Company Number: DK-009507513-1304DNK007404

PATIENT
  Age: 43 Year
  Sex: Female

DRUGS (1)
  1. SINGULAIR [Suspect]
     Active Substance: MONTELUKAST SODIUM
     Indication: ASTHMA
     Dosage: 10 MG, QD
     Route: 048
     Dates: start: 20120314, end: 20120515

REACTIONS (7)
  - Sensory disturbance [Not Recovered/Not Resolved]
  - Demyelination [Unknown]
  - Mononeuropathy multiplex [Recovered/Resolved with Sequelae]
  - Neuropathy peripheral [Not Recovered/Not Resolved]
  - Peroneal nerve palsy [Not Recovered/Not Resolved]
  - Muscular weakness [Unknown]
  - Allergic granulomatous angiitis [Recovered/Resolved with Sequelae]

NARRATIVE: CASE EVENT DATE: 201203
